FAERS Safety Report 7960128-6 (Version None)
Quarter: 2011Q4

REPORT INFORMATION
  Report Type: 
  Country: None (occurrence: None)
  Receive Date: 20111206
  Receipt Date: 20111130
  Transmission Date: 20120403
  Serious: Yes (Hospitalization)
  Sender: FDA-Public Use
  Company Number: PHHY2011DE104978

PATIENT
  Sex: Female
  Weight: 85 kg

DRUGS (15)
  1. ZOMETA [Suspect]
     Dosage: 4 MG, UNK
     Route: 042
     Dates: start: 20110628
  2. ZOMETA [Suspect]
     Dosage: 4 MG, UNK
     Route: 042
     Dates: start: 20111027
  3. ZOMETA [Suspect]
     Dosage: 4 MG, UNK
     Route: 042
     Dates: start: 20110104
  4. ZOMETA [Suspect]
     Dosage: 4 MG, UNK
     Route: 042
     Dates: start: 20111122
  5. CARBOPLATIN [Concomitant]
     Dosage: UNK UKN, UNK
     Dates: start: 20100922
  6. ZOMETA [Suspect]
     Indication: METASTASES TO BONE
     Dosage: 4 MG, UNK
     Route: 042
     Dates: start: 20100907
  7. ZOMETA [Suspect]
     Dosage: 4 MG, UNK
     Route: 042
     Dates: start: 20110201
  8. ZOMETA [Suspect]
     Dosage: 4 MG, UNK
     Route: 042
     Dates: start: 20110301
  9. ZOMETA [Suspect]
     Dosage: 4 MG, UNK
     Route: 042
     Dates: start: 20110722
  10. ZOMETA [Suspect]
     Dosage: 4 MG, UNK
     Route: 042
     Dates: start: 20101102
  11. ZOMETA [Suspect]
     Dosage: 4 MG, UNK
     Route: 042
     Dates: start: 20110329
  12. ZOMETA [Suspect]
     Dosage: 4 MG, UNK
     Route: 042
     Dates: start: 20110526
  13. ZOMETA [Suspect]
     Dosage: 4 MG, UNK
     Route: 042
     Dates: start: 20110426
  14. GEMCITABINE [Concomitant]
     Dosage: UNK UKN, UNK
     Dates: start: 20100922
  15. ABRAXANE [Concomitant]
     Dosage: 491 MG, REPEATED ON DAY 22
     Dates: start: 20110912

REACTIONS (5)
  - DIPLOPIA [None]
  - DISEASE PROGRESSION [None]
  - PORTAL VEIN THROMBOSIS [None]
  - MUSCULAR WEAKNESS [None]
  - CEREBRAL DISORDER [None]
